FAERS Safety Report 4958327-0 (Version None)
Quarter: 2006Q1

REPORT INFORMATION
  Report Type: 
  Country: None (occurrence: None)
  Receive Date: 20060329
  Receipt Date: 20060329
  Transmission Date: 20060701
  Serious: Yes (Life-Threatening)
  Sender: FDA-Public Use
  Company Number: None

PATIENT
  Age: 63 Year
  Sex: Male
  Weight: 99 kg

DRUGS (15)
  1. CLOPIDOGREL [Suspect]
     Indication: CEREBROVASCULAR ACCIDENT PROPHYLAXIS
     Dosage: 75 MG QD PO
     Route: 048
     Dates: start: 20050603, end: 20050604
  2. ASPIRIN [Suspect]
     Indication: MYOCARDIAL INFARCTION
     Dosage: 325 MG QD PO
     Route: 048
     Dates: start: 20050603, end: 20050603
  3. FAMOTIDINE [Concomitant]
  4. CEFAZOLIN [Concomitant]
  5. METOCLOPRAMIDE [Concomitant]
  6. METOPROLOL [Concomitant]
  7. MORPHINE [Concomitant]
  8. INSULIN [Concomitant]
  9. MIDAZOLAM HCL [Concomitant]
  10. FUROSEMIDE [Concomitant]
  11. PHYTONADIONE [Concomitant]
  12. MEROPENEM [Concomitant]
  13. CALCIUM GLUCONATE [Concomitant]
  14. VANCOMYCIN [Concomitant]
  15. NOREPINEPHRINE [Concomitant]

REACTIONS (9)
  - ACUTE MYOCARDIAL INFARCTION [None]
  - CARDIO-RESPIRATORY ARREST [None]
  - CEREBROVASCULAR ACCIDENT [None]
  - CHEST PAIN [None]
  - GENERAL PHYSICAL HEALTH DETERIORATION [None]
  - HAEMATOCRIT DECREASED [None]
  - HAEMOGLOBIN DECREASED [None]
  - HYPOTENSION [None]
  - RESPIRATORY FAILURE [None]
